FAERS Safety Report 19461547 (Version 1)
Quarter: 2021Q2

REPORT INFORMATION
  Report Type: Other
  Country: US (occurrence: US)
  Receive Date: 20210625
  Receipt Date: 20210625
  Transmission Date: 20210717
  Serious: Yes (Other)
  Sender: FDA-Public Use
  Company Number: US-ROCHE-2851097

PATIENT
  Sex: Female

DRUGS (4)
  1. NUTROPIN [Suspect]
     Active Substance: SOMATROPIN
  2. NUTROPIN [Suspect]
     Active Substance: SOMATROPIN
     Indication: GROWTH HORMONE DEFICIENCY
     Dosage: 0.2 MG PER INJECTION, SUBCUTANEOUS, 1 INJECTION EVERY DAY X 7 DAYS.
     Route: 058
  3. NUTROPIN [Suspect]
     Active Substance: SOMATROPIN
  4. NUTROPIN [Suspect]
     Active Substance: SOMATROPIN
     Indication: HYPOPITUITARISM

REACTIONS (3)
  - Head injury [Unknown]
  - Intercepted product storage error [Unknown]
  - Road traffic accident [Unknown]
